FAERS Safety Report 15016415 (Version 19)
Quarter: 2023Q4

REPORT INFORMATION
  Report Type: Spontaneous
  Country: US (occurrence: US)
  Receive Date: 20180615
  Receipt Date: 20231129
  Transmission Date: 20240110
  Serious: No
  Sender: FDA-Public Use
  Company Number: US-PFIZER INC-2018240889

PATIENT
  Age: 65 Year
  Sex: Male
  Weight: 83.9 kg

DRUGS (18)
  1. BOSULIF [Suspect]
     Active Substance: BOSUTINIB MONOHYDRATE
     Indication: Chronic myeloid leukaemia
     Dosage: 300 MG, 1X/DAY (TAKE 3- 100 MG TABS DAILY (300MG DAILY). 90 TABS/ 30DAYS)
     Route: 048
  2. BOSULIF [Suspect]
     Active Substance: BOSUTINIB MONOHYDRATE
     Dosage: 100 MG, 3X/DAY
  3. BOSULIF [Suspect]
     Active Substance: BOSUTINIB MONOHYDRATE
     Dosage: 300 MG, 1X/DAY
     Dates: start: 2016
  4. IBRANCE [Concomitant]
     Active Substance: PALBOCICLIB
     Dosage: UNK
  5. LOSARTAN [Concomitant]
     Active Substance: LOSARTAN
     Indication: Blood pressure abnormal
     Dosage: 50 MG, 1X/DAY
     Dates: start: 2016
  6. LOSARTAN [Concomitant]
     Active Substance: LOSARTAN
     Indication: Hypertension
  7. METOPROLOL SUCCINATE [Concomitant]
     Active Substance: METOPROLOL SUCCINATE
     Indication: Heart rate decreased
     Dosage: 100 MG, 1X/DAY
     Dates: start: 2016
  8. METOPROLOL SUCCINATE [Concomitant]
     Active Substance: METOPROLOL SUCCINATE
     Indication: Blood pressure abnormal
  9. ATORVASTATIN [Concomitant]
     Active Substance: ATORVASTATIN
     Indication: Low density lipoprotein increased
     Dosage: 20 MG, 1X/DAY
  10. ATORVASTATIN [Concomitant]
     Active Substance: ATORVASTATIN
     Indication: Blood cholesterol
     Dosage: 10 MG, 1X/DAY
     Dates: start: 2016
  11. STIOLTO RESPIMAT [Concomitant]
     Active Substance: OLODATEROL HYDROCHLORIDE\TIOTROPIUM BROMIDE MONOHYDRATE
     Indication: Chronic obstructive pulmonary disease
     Dosage: 5.0 UG, 1X/DAY
  12. STIOLTO RESPIMAT [Concomitant]
     Active Substance: OLODATEROL HYDROCHLORIDE\TIOTROPIUM BROMIDE MONOHYDRATE
     Dosage: 2 PUFFS, 1X/DAY
     Dates: start: 2016
  13. PROAIR HFA [Concomitant]
     Active Substance: ALBUTEROL SULFATE
     Indication: Chronic obstructive pulmonary disease
     Dosage: 90 UG, UNK
     Route: 055
  14. PROAIR HFA [Concomitant]
     Active Substance: ALBUTEROL SULFATE
     Dosage: UNK, AS NEEDED (NOT TO EXCEED 3 TIMES A DAY)
     Dates: start: 2016
  15. TOPROL XL [Concomitant]
     Active Substance: METOPROLOL SUCCINATE
     Indication: Cardiac disorder
     Dosage: UNK
  16. ANORO ELLIPTA [Concomitant]
     Active Substance: UMECLIDINIUM BROMIDE\VILANTEROL TRIFENATATE
     Dosage: UNK UNK, 1X/DAY ONE PUFF A DAY
  17. TYLENOL [Concomitant]
     Active Substance: ACETAMINOPHEN
     Dosage: 350 MG
  18. Comirnaty(2023-2024) [Concomitant]
     Indication: COVID-19 immunisation
     Dosage: DOSE 1, SINGLE

REACTIONS (16)
  - Cold-stimulus headache [Recovered/Resolved]
  - Confusional state [Recovered/Resolved]
  - Memory impairment [Not Recovered/Not Resolved]
  - Sluggishness [Not Recovered/Not Resolved]
  - Nausea [Recovered/Resolved]
  - Oropharyngeal pain [Unknown]
  - Diarrhoea [Unknown]
  - Abnormal faeces [Unknown]
  - Malaise [Not Recovered/Not Resolved]
  - Fall [Recovering/Resolving]
  - Pain in extremity [Recovering/Resolving]
  - Sciatica [Recovering/Resolving]
  - Pain [Recovering/Resolving]
  - Arthralgia [Recovering/Resolving]
  - Off label use [Unknown]
  - Product dose omission issue [Unknown]

NARRATIVE: CASE EVENT DATE: 20220415
